FAERS Safety Report 9897561 (Version 1)
Quarter: 2014Q1

REPORT INFORMATION
  Report Type: Spontaneous
  Country: US (occurrence: US)
  Receive Date: 20140214
  Receipt Date: 20140214
  Transmission Date: 20141002
  Serious: No
  Sender: FDA-Public Use
  Company Number: US-BAYER-2014-021392

PATIENT
  Age: 44 Year
  Sex: Female

DRUGS (2)
  1. GADAVIST [Suspect]
     Indication: NUCLEAR MAGNETIC RESONANCE IMAGING LIVER
     Dosage: 13 ML, ONCE
     Dates: start: 20140210, end: 20140210
  2. GADAVIST [Suspect]
     Indication: SKIN LESION

REACTIONS (3)
  - Urticaria [None]
  - Erythema [None]
  - Pruritus [None]
